FAERS Safety Report 5841157-5 (Version None)
Quarter: 2008Q3

REPORT INFORMATION
  Report Type: 
  Country: None (occurrence: None)
  Receive Date: 20080807
  Receipt Date: 20080807
  Transmission Date: 20090109
  Serious: Yes (Life-Threatening, Hospitalization, Other)
  Sender: FDA-Public Use
  Company Number: None

PATIENT
  Age: 29 Year
  Sex: Male
  Weight: 79.3795 kg

DRUGS (1)
  1. MEFLOQUINE [Suspect]
     Indication: MALARIA PROPHYLAXIS
     Dosage: ONCE A WEEK PO
     Route: 048
     Dates: start: 20070101, end: 20070115

REACTIONS (10)
  - ACTIVITIES OF DAILY LIVING IMPAIRED [None]
  - AGGRESSION [None]
  - ANGER [None]
  - BIPOLAR DISORDER [None]
  - CONFUSIONAL STATE [None]
  - FEELING ABNORMAL [None]
  - HALLUCINATION [None]
  - IMPAIRED WORK ABILITY [None]
  - MENTAL DISORDER [None]
  - SUICIDAL IDEATION [None]
